FAERS Safety Report 9349064 (Version 3)
Quarter: 2013Q3

REPORT INFORMATION
  Report Type: Spontaneous
  Country: IE (occurrence: IE)
  Receive Date: 20130614
  Receipt Date: 20130926
  Transmission Date: 20140515
  Serious: Yes (Hospitalization)
  Sender: FDA-Public Use
  Company Number: IE-MERCK-1306IRL006262

PATIENT
  Age: 68 Year
  Sex: Male

DRUGS (2)
  1. JANUMET [Suspect]
     Indication: DIABETES MELLITUS
     Dosage: 50/850 MG, TWICE DAILY
     Route: 048
     Dates: start: 201202, end: 201306
  2. NEXIUM [Concomitant]
     Indication: INFECTION

REACTIONS (4)
  - Dehydration [Recovered/Resolved]
  - Malaise [Recovered/Resolved]
  - Weight decreased [Recovered/Resolved]
  - Helicobacter infection [Recovered/Resolved]
